FAERS Safety Report 10873408 (Version 1)
Quarter: 2015Q1

REPORT INFORMATION
  Report Type: Spontaneous
  Country: BR (occurrence: BR)
  Receive Date: 20150227
  Receipt Date: 20150227
  Transmission Date: 20150721
  Serious: Yes (Other)
  Sender: FDA-Public Use
  Company Number: BR-SA-2015SA021836

PATIENT
  Age: 33 Year
  Sex: Male
  Weight: 106 kg

DRUGS (7)
  1. THYMOGLOBULINE [Suspect]
     Active Substance: LAPINE T-LYMPHOCYTE IMMUNE GLOBULIN
     Indication: ACUTE LYMPHOCYTIC LEUKAEMIA
     Route: 042
     Dates: start: 20150204, end: 20150207
  2. CICLOSPORIN [Concomitant]
     Active Substance: CYCLOSPORINE
     Route: 042
  3. DRAMAMINE [Concomitant]
     Active Substance: DIMENHYDRINATE
     Dosage: 1 VIAL/ 3XDAILY
     Route: 042
  4. TEICOPLANIN [Concomitant]
     Active Substance: TEICOPLANIN
     Route: 042
  5. PANTOZOL [Concomitant]
     Active Substance: PANTOPRAZOLE SODIUM
     Route: 042
  6. ZOVIRAX [Concomitant]
     Active Substance: ACYCLOVIR
     Route: 042
  7. DIAZEPAM. [Concomitant]
     Active Substance: DIAZEPAM
     Route: 042

REACTIONS (9)
  - Nausea [Unknown]
  - Chills [Unknown]
  - Gamma-glutamyltransferase increased [Unknown]
  - Alanine aminotransferase increased [Unknown]
  - Platelet count decreased [Unknown]
  - Headache [Unknown]
  - Vomiting [Unknown]
  - Leukopenia [Unknown]
  - Hypotension [Unknown]

NARRATIVE: CASE EVENT DATE: 20150204
